FAERS Safety Report 6743975-8 (Version None)
Quarter: 2010Q2

REPORT INFORMATION
  Report Type: 
  Country: None (occurrence: None)
  Receive Date: 20100527
  Receipt Date: 20100525
  Transmission Date: 20101027
  Serious: Yes (Other)
  Sender: FDA-Public Use
  Company Number: US-SANOFI-AVENTIS-2010SA021272

PATIENT
  Age: 62 Year
  Sex: Male
  Weight: 95.91 kg

DRUGS (7)
  1. PLAVIX [Suspect]
     Route: 048
     Dates: start: 19990317
  2. PLAVIX [Suspect]
     Route: 048
     Dates: start: 19990317
  3. PLAVIX [Suspect]
     Indication: CORONARY ARTERY DISEASE
     Route: 048
     Dates: start: 19990317
  4. PLAVIX [Suspect]
     Route: 048
     Dates: start: 19990317
  5. LIPITOR [Concomitant]
  6. METOPROLOL [Concomitant]
  7. ASPIRIN [Concomitant]

REACTIONS (2)
  - DEEP VEIN THROMBOSIS [None]
  - PERIPHERAL ARTERIAL OCCLUSIVE DISEASE [None]
